FAERS Safety Report 10975129 (Version 1)
Quarter: 2015Q2

REPORT INFORMATION
  Report Type: Spontaneous
  Country: US (occurrence: US)
  Receive Date: 20150401
  Receipt Date: 20150401
  Transmission Date: 20150821
  Serious: No
  Sender: FDA-Public Use
  Company Number: US-PFIZER INC-2015105830

PATIENT
  Age: 69 Year
  Sex: Female
  Weight: 67 kg

DRUGS (13)
  1. VALIUM [Concomitant]
     Active Substance: DIAZEPAM
     Indication: SLEEP DISORDER
  2. ADVAIR DISKUS [Concomitant]
     Active Substance: FLUTICASONE PROPIONATE\SALMETEROL XINAFOATE
     Indication: ASTHMA
     Dosage: 250/50, ONE INHALATION
  3. GABAPENTIN. [Suspect]
     Active Substance: GABAPENTIN
     Indication: INSOMNIA
     Dosage: 300MG CAPSULES, 5 A NIGHT, PLUS 1 OR 2 100MG CAPSULES
  4. CLONAZEPAM. [Concomitant]
     Active Substance: CLONAZEPAM
  5. CHLORPROMAZINE [Concomitant]
     Active Substance: CHLORPROMAZINE
     Dosage: 12.5 MG, 1X/DAY
  6. GABAPENTIN. [Suspect]
     Active Substance: GABAPENTIN
     Indication: AGITATION
  7. LITHIUM. [Concomitant]
     Active Substance: LITHIUM
     Indication: EUPHORIC MOOD
     Dosage: 300 MG, 1X/DAY
     Dates: start: 1995
  8. PERCOCET [Concomitant]
     Active Substance: ACETAMINOPHEN\OXYCODONE HYDROCHLORIDE
     Indication: ARTHRITIS
     Dosage: 325, 4X/DAY
  9. SYNTHROID [Concomitant]
     Active Substance: LEVOTHYROXINE SODIUM
     Indication: THYROID DISORDER
     Dosage: .125 MG, UNK
  10. TRILEPTAL [Concomitant]
     Active Substance: OXCARBAZEPINE
     Dosage: 900 MG, DAILY
  11. LAMICTAL [Concomitant]
     Active Substance: LAMOTRIGINE
     Dosage: 25 MG, 1X/DAY
  12. FLONASE [Concomitant]
     Active Substance: FLUTICASONE PROPIONATE
     Indication: ASTHMA
  13. PARNATE [Concomitant]
     Active Substance: TRANYLCYPROMINE SULFATE

REACTIONS (3)
  - Pre-existing condition improved [Unknown]
  - Intentional product misuse [Unknown]
  - Therapeutic response unexpected [Unknown]
